FAERS Safety Report 8157024-0 (Version None)
Quarter: 2012Q1

REPORT INFORMATION
  Report Type: 
  Country: None (occurrence: None)
  Receive Date: 20120222
  Receipt Date: 20120217
  Transmission Date: 20120608
  Serious: Yes (Other)
  Sender: FDA-Public Use
  Company Number: DE-GENZYME-CAMP-1002128

PATIENT
  Age: 66 Year
  Sex: Male
  Weight: 100 kg

DRUGS (4)
  1. MITOXANTRONE [Suspect]
     Indication: T-CELL PROLYMPHOCYTIC LEUKAEMIA
     Dosage: 6 MG (3 CYCLES)
     Route: 042
     Dates: start: 20111105, end: 20120105
  2. FLUDARA [Suspect]
     Indication: T-CELL PROLYMPHOCYTIC LEUKAEMIA
     Dosage: 20 MG (3 CYCLES)
     Route: 042
     Dates: start: 20111105, end: 20120107
  3. CYCLOPHOSPHAMIDE [Suspect]
     Indication: T-CELL PROLYMPHOCYTIC LEUKAEMIA
     Dosage: 200 MG (3 CYCLES)
     Route: 042
     Dates: start: 20111105, end: 20120107
  4. CAMPATH [Suspect]
     Indication: T-CELL PROLYMPHOCYTIC LEUKAEMIA
     Dosage: 10 MG (3 CYCLES)
     Route: 058
     Dates: start: 20111105, end: 20120107

REACTIONS (1)
  - NEOPLASM [None]
